FAERS Safety Report 7474873-2 (Version None)
Quarter: 2011Q2

REPORT INFORMATION
  Report Type: 
  Country: None (occurrence: None)
  Receive Date: 20110512
  Receipt Date: 20110504
  Transmission Date: 20111010
  Serious: Yes (Death, Hospitalization, Other)
  Sender: FDA-Public Use
  Company Number: US-CELGENEUS-163-21880-11050569

PATIENT
  Age: 69 Year
  Sex: Male

DRUGS (7)
  1. RENVELA [Concomitant]
     Route: 065
  2. AMIODARONE HCL [Concomitant]
     Route: 065
  3. HYDROCODONE BITARTRATE AND ACETAMINOPHEN [Concomitant]
     Route: 065
  4. REVLIMID [Suspect]
     Indication: MULTIPLE MYELOMA
     Dosage: 5 MILLIGRAM
     Route: 048
     Dates: start: 20100801, end: 20100920
  5. BISACODYL [Concomitant]
     Route: 065
  6. DOCUSATE [Concomitant]
     Route: 065
  7. CARVEDILOL [Concomitant]
     Route: 065

REACTIONS (4)
  - SKIN ULCER [None]
  - THROMBOCYTOPENIA [None]
  - DEATH [None]
  - ANAEMIA [None]
